FAERS Safety Report 6597053-1 (Version None)
Quarter: 2010Q1

REPORT INFORMATION
  Report Type: 
  Country: None (occurrence: None)
  Receive Date: 20100223
  Receipt Date: 20100218
  Transmission Date: 20100710
  Serious: Yes (Life-Threatening, Hospitalization)
  Sender: FDA-Public Use
  Company Number: A0845743A

PATIENT
  Age: 48 Year
  Sex: Female

DRUGS (5)
  1. AVANDIA [Suspect]
     Dosage: 4MG PER DAY
     Route: 048
     Dates: start: 20050101, end: 20091201
  2. GLIMEPIRIDE [Suspect]
     Dosage: 8MGD PER DAY
     Route: 048
     Dates: start: 20050101, end: 20091201
  3. METFORMIN HCL [Suspect]
     Dosage: 1000MGD PER DAY
     Route: 048
  4. LISINOPRIL [Suspect]
     Dosage: 20MG PER DAY
     Route: 048
     Dates: start: 20050101
  5. LANTUS [Concomitant]
     Dosage: 50UNIT IN THE MORNING
     Route: 058

REACTIONS (7)
  - BLOOD GLUCOSE INCREASED [None]
  - DIZZINESS [None]
  - FLUID RETENTION [None]
  - HYPERTENSION [None]
  - INFECTED SKIN ULCER [None]
  - LOSS OF CONSCIOUSNESS [None]
  - SECRETION DISCHARGE [None]
